FAERS Safety Report 12201072 (Version 1)
Quarter: 2016Q1

REPORT INFORMATION
  Report Type: Spontaneous
  Country: US (occurrence: US)
  Receive Date: 20160322
  Receipt Date: 20160322
  Transmission Date: 20160526
  Serious: No
  Sender: FDA-Public Use
  Company Number: US-SA-2015SA077298

PATIENT
  Age: 71 Year
  Sex: Male

DRUGS (1)
  1. NASACORT ALLERGY 24HR [Suspect]
     Active Substance: TRIAMCINOLONE ACETONIDE
     Indication: MULTIPLE ALLERGIES
     Dosage: DOSE: 2 SPRAYS/ NOSTRILS DAILY
     Route: 045
     Dates: start: 20150528

REACTIONS (3)
  - Agitation [Recovered/Resolved]
  - Drug ineffective [Unknown]
  - Aggression [Unknown]
